FAERS Safety Report 21238602 (Version 1)
Quarter: 2022Q3

REPORT INFORMATION
  Report Type: Spontaneous
  Country: ES (occurrence: ES)
  Receive Date: 20220822
  Receipt Date: 20220822
  Transmission Date: 20221027
  Serious: Yes (Other)
  Sender: FDA-Public Use
  Company Number: None

PATIENT
  Age: 32 Year
  Sex: Female

DRUGS (3)
  1. CYTOTEC [Suspect]
     Active Substance: MISOPROSTOL
     Indication: Abortion induced
     Dosage: UNK
     Route: 048
     Dates: start: 20210607
  2. OXYTOCIN [Suspect]
     Active Substance: OXYTOCIN
     Indication: Abortion induced
     Dosage: UNK
     Dates: start: 20210607
  3. CEFAZOLIN [Suspect]
     Active Substance: CEFAZOLIN
     Indication: Abortion induced
     Dosage: UNK
     Dates: start: 20210607

REACTIONS (6)
  - Anaphylactic reaction [Recovered/Resolved]
  - Angioedema [Recovered/Resolved]
  - Pruritus [Recovered/Resolved]
  - Dizziness [Recovered/Resolved]
  - Erythema [Recovered/Resolved]
  - Off label use [Unknown]

NARRATIVE: CASE EVENT DATE: 20210607
